FAERS Safety Report 6860232-X (Version None)
Quarter: 2010Q3

REPORT INFORMATION
  Report Type: 
  Country: None (occurrence: None)
  Receive Date: 20100720
  Receipt Date: 20100706
  Transmission Date: 20110219
  Serious: Yes (Hospitalization, Other)
  Sender: FDA-Public Use
  Company Number: PHHY2010JP40356

PATIENT
  Sex: Female
  Weight: 50 kg

DRUGS (12)
  1. TEGRETOL [Suspect]
     Indication: EPILEPSY
     Dosage: 400 MG DAILY
     Route: 048
     Dates: start: 20100409, end: 20100416
  2. TEGRETOL [Suspect]
     Dosage: 200 MG DAILY
     Route: 048
     Dates: start: 20100417, end: 20100602
  3. OLMETEC [Concomitant]
     Indication: GASTROINTESTINAL HAEMORRHAGE
     Dosage: 20 MG, UNK
     Route: 048
     Dates: start: 20100410
  4. GASTER [Concomitant]
     Indication: GASTROINTESTINAL HAEMORRHAGE
     Dosage: 20 MG, UNK
     Route: 048
     Dates: start: 20100410
  5. ATELEC [Concomitant]
     Indication: HYPERTENSION
     Dosage: 10 MG, UNK
     Route: 048
     Dates: start: 20100417
  6. ADALAT [Concomitant]
     Indication: HYPERTENSION
     Dosage: UNK
     Route: 048
     Dates: start: 20100410, end: 20100401
  7. ASPIRIN [Concomitant]
     Indication: CEREBROVASCULAR DISORDER
     Dosage: 100 MG, UNK
     Route: 048
     Dates: start: 20100412
  8. PRIMPERAN TAB [Concomitant]
     Indication: VOMITING
     Dosage: 10 MG, UNK
     Route: 042
     Dates: start: 20100413, end: 20100419
  9. XANBON [Concomitant]
     Indication: THROMBOSIS
     Dosage: 160 MG, UNK
     Dates: start: 20100409, end: 20100411
  10. OZAGREL SODIUM [Concomitant]
     Indication: THROMBOSIS
     Dosage: 160 MG, UNK
     Dates: start: 20100409, end: 20100411
  11. DIOVAN [Concomitant]
     Indication: HYPERTENSION
     Dosage: 80 MG, UNK
     Route: 048
     Dates: start: 20100412, end: 20100416
  12. LEVEMIR [Concomitant]
     Dosage: 6 UNITS

REACTIONS (12)
  - BLOOD ALKALINE PHOSPHATASE INCREASED [None]
  - BLOOD GLUCOSE INCREASED [None]
  - CONVULSION [None]
  - DRUG ERUPTION [None]
  - EOSINOPHIL COUNT INCREASED [None]
  - ERYTHEMA [None]
  - GENERALISED OEDEMA [None]
  - HUMAN HERPES VIRUS 6 SEROLOGY POSITIVE [None]
  - LYMPHOCYTE STIMULATION TEST POSITIVE [None]
  - RASH [None]
  - TRANSIENT ISCHAEMIC ATTACK [None]
  - VOMITING [None]
